FAERS Safety Report 11322433 (Version 1)
Quarter: 2015Q3

REPORT INFORMATION
  Report Type: Report from Study
  Country: US (occurrence: US)
  Receive Date: 20150730
  Receipt Date: 20150730
  Transmission Date: 20151125
  Serious: Yes (Hospitalization, Other)
  Sender: FDA-Public Use
  Company Number: US-AMGEN-USASL2015074960

PATIENT
  Age: 55 Year
  Sex: Female

DRUGS (1)
  1. NPLATE [Suspect]
     Active Substance: ROMIPLOSTIM
     Indication: PRODUCT USED FOR UNKNOWN INDICATION
     Dosage: UNK
     Route: 065
     Dates: start: 20130601

REACTIONS (6)
  - Sinus operation [Unknown]
  - Anxiety [Unknown]
  - Nasopharyngitis [Unknown]
  - Platelet count decreased [Unknown]
  - Injection site pain [Unknown]
  - Influenza [Unknown]
